APPROVED DRUG PRODUCT: ZOLMITRIPTAN
Active Ingredient: ZOLMITRIPTAN
Strength: 2.5MG
Dosage Form/Route: TABLET, ORALLY DISINTEGRATING;ORAL
Application: A202956 | Product #001 | TE Code: AB
Applicant: JUBILANT GENERICS LTD
Approved: Sep 17, 2015 | RLD: No | RS: No | Type: RX